FAERS Safety Report 7536962-3 (Version None)
Quarter: 2011Q2

REPORT INFORMATION
  Report Type: 
  Country: None (occurrence: None)
  Receive Date: 20110609
  Receipt Date: 20110603
  Transmission Date: 20111010
  Serious: Yes (Hospitalization)
  Sender: FDA-Public Use
  Company Number: BR-US-EMD SERONO, INC.-230220J10BRA

PATIENT
  Sex: Female

DRUGS (3)
  1. INCONTINOL (OXYBUTININ) [Concomitant]
  2. CLONAZEPAM [Concomitant]
  3. REBIF [Suspect]
     Indication: RELAPSING-REMITTING MULTIPLE SCLEROSIS
     Route: 058
     Dates: start: 20090107

REACTIONS (8)
  - WEIGHT DECREASED [None]
  - INJECTION SITE ERYTHEMA [None]
  - INJECTION SITE HAEMATOMA [None]
  - OVARIAN ENLARGEMENT [None]
  - MOBILITY DECREASED [None]
  - FEELING COLD [None]
  - TREMOR [None]
  - INCORRECT ROUTE OF DRUG ADMINISTRATION [None]
